FAERS Safety Report 7644962-8 (Version None)
Quarter: 2011Q3

REPORT INFORMATION
  Report Type: 
  Country: None (occurrence: None)
  Receive Date: 20110729
  Receipt Date: 20110725
  Transmission Date: 20111222
  Serious: Yes (Other)
  Sender: FDA-Public Use
  Company Number: BR-GLAXOSMITHKLINE-A0938571A

PATIENT
  Sex: Male
  Weight: 22 kg

DRUGS (2)
  1. FLUTICASONE PROPIONATE/SALMETEROL [Suspect]
     Indication: ALLERGIC RESPIRATORY DISEASE
     Dosage: 1PUFF TWICE PER DAY
     Route: 055
     Dates: start: 20110712, end: 20110716
  2. SINGULAIR [Suspect]
     Indication: PRODUCT USED FOR UNKNOWN INDICATION
     Dosage: 1SAC AT NIGHT
     Route: 065
     Dates: start: 20110712, end: 20110716

REACTIONS (5)
  - DYSPNOEA [None]
  - COUGH [None]
  - TACHYCARDIA [None]
  - ASTHENIA [None]
  - ASPHYXIA [None]
